FAERS Safety Report 13888844 (Version 1)
Quarter: 2017Q3

REPORT INFORMATION
  Report Type: Spontaneous
  Country: None (occurrence: DE)
  Receive Date: 20170821
  Receipt Date: 20170821
  Transmission Date: 20171127
  Serious: Yes (Hospitalization)
  Sender: FDA-Public Use
  Company Number: DE-ALLERGAN-1735763US

PATIENT
  Sex: Male

DRUGS (1)
  1. OPTIVE FUSION (CARBOXYMETHYLCELLULOSE SODIUM\GLYCERIN) [Suspect]
     Active Substance: CARBOXYMETHYLCELLULOSE SODIUM\GLYCERIN
     Indication: DRY EYE
     Dosage: UNK, UNKNOWN
     Route: 047

REACTIONS (2)
  - Balance disorder [Unknown]
  - Dizziness [Unknown]
